FAERS Safety Report 10997594 (Version 4)
Quarter: 2016Q3

REPORT INFORMATION
  Report Type: Report from Study
  Country: JP (occurrence: JP)
  Receive Date: 20150408
  Receipt Date: 20160703
  Transmission Date: 20161109
  Serious: Yes (Life-Threatening, Hospitalization)
  Sender: FDA-Public Use
  Company Number: JP-ROCHE-1561009

PATIENT
  Age: 83 Year
  Sex: Female
  Weight: 41 kg

DRUGS (1)
  1. TRASTUZUMAB EMTANSINE [Suspect]
     Active Substance: ADO-TRASTUZUMAB EMTANSINE
     Indication: BREAST CANCER
     Route: 041
     Dates: start: 20150305

REACTIONS (2)
  - Altered state of consciousness [Recovered/Resolved]
  - Hyperammonaemia [Recovered/Resolved]

NARRATIVE: CASE EVENT DATE: 20150312
